FAERS Safety Report 7647902-0 (Version None)
Quarter: 2011Q3

REPORT INFORMATION
  Report Type: 
  Country: None (occurrence: None)
  Receive Date: 20110801
  Receipt Date: 20110504
  Transmission Date: 20111222
  Serious: No
  Sender: FDA-Public Use
  Company Number: US-ABBOTT-11P-163-0804535-00

PATIENT

DRUGS (2)
  1. PANCREATIN TRIPLE STRENGTH CAP [Suspect]
     Indication: PANCREATIC DISORDER
     Dosage: DAILY DOSE:  UNKNOWN
     Route: 065
     Dates: end: 20110101
  2. PANCREATIN TRIPLE STRENGTH CAP [Suspect]
     Indication: GASTRIC DISORDER

REACTIONS (1)
  - REFUSAL OF TREATMENT BY PATIENT [None]
